FAERS Safety Report 4337308-4 (Version None)
Quarter: 2004Q2

REPORT INFORMATION
  Report Type: 
  Country: None (occurrence: None)
  Receive Date: 20040406
  Receipt Date: 20030307
  Transmission Date: 20050107
  Serious: Yes (Other)
  Sender: FDA-Public Use
  Company Number: 2002BL007690

PATIENT
  Age: 12 Year
  Sex: Male

DRUGS (5)
  1. ALREX [Suspect]
     Indication: CONJUNCTIVITIS ALLERGIC
     Dosage: 4 TIMES A DAY; BOTH EYES
     Dates: start: 20020416, end: 20021101
  2. ALREX [Suspect]
  3. ALAMAST [Concomitant]
  4. ZADITOR [Concomitant]
  5. SHAMPOO EYELID SCRUBS [Concomitant]

REACTIONS (4)
  - BLINDNESS TRANSIENT [None]
  - CORNEAL PERFORATION [None]
  - DEPRESSION [None]
  - VISION BLURRED [None]
